FAERS Safety Report 7287760-X (Version None)
Quarter: 2011Q1

REPORT INFORMATION
  Report Type: 
  Country: None (occurrence: None)
  Receive Date: 20110211
  Receipt Date: 20110201
  Transmission Date: 20110831
  Serious: Yes (Hospitalization)
  Sender: FDA-Public Use
  Company Number: US-JNJFOC-20110200957

PATIENT
  Sex: Male
  Weight: 53.5 kg

DRUGS (4)
  1. HUMIRA [Concomitant]
  2. METHOTREXATE [Concomitant]
  3. INFLIXIMAB, RECOMBINANT [Suspect]
     Route: 042
  4. INFLIXIMAB, RECOMBINANT [Suspect]
     Indication: CROHN'S DISEASE
     Route: 042

REACTIONS (1)
  - ABDOMINAL PAIN [None]
